FAERS Safety Report 9970194 (Version 1)
Quarter: 2014Q1

REPORT INFORMATION
  Report Type: Report from Study
  Country: US (occurrence: US)
  Receive Date: 20140306
  Receipt Date: 20140306
  Transmission Date: 20141002
  Serious: Yes (Hospitalization)
  Sender: FDA-Public Use
  Company Number: US-NAPPMUNDI-USA-2014-0111769

PATIENT
  Age: 50 Year
  Sex: Female

DRUGS (2)
  1. OXY CR TAB [Suspect]
     Indication: PRODUCT USED FOR UNKNOWN INDICATION
     Dosage: UNK
     Route: 048
     Dates: start: 201012
  2. OXY CR TAB [Suspect]
     Dosage: 80 MG, BID
     Route: 048
     Dates: start: 20131224

REACTIONS (1)
  - Nephrectomy [Unknown]
